FAERS Safety Report 5894454-1 (Version None)
Quarter: 2008Q3

REPORT INFORMATION
  Report Type: 
  Country: None (occurrence: None)
  Receive Date: 20080923
  Receipt Date: 20080923
  Transmission Date: 20090109
  Serious: Yes (Life-Threatening, Hospitalization)
  Sender: FDA-Public Use
  Company Number: None

PATIENT
  Age: 59 Year
  Sex: Male

DRUGS (1)
  1. AMIODARONE [Suspect]
     Dosage: 400 MG BID PO
     Route: 048
     Dates: start: 20080909, end: 20080913

REACTIONS (3)
  - HAEMATOMA [None]
  - NON-CARDIOGENIC PULMONARY OEDEMA [None]
  - TREATMENT FAILURE [None]
